FAERS Safety Report 7174132-1 (Version None)
Quarter: 2010Q4

REPORT INFORMATION
  Report Type: 
  Country: None (occurrence: None)
  Receive Date: 20101202
  Receipt Date: 20101115
  Transmission Date: 20110411
  Serious: Yes (Death, Hospitalization)
  Sender: FDA-Public Use
  Company Number: B0685706A

PATIENT
  Age: 5 Year
  Sex: Male

DRUGS (4)
  1. ZANAMIVIR INJECTION (GENERIC) (ZANAMIVIR) [Suspect]
     Indication: INFLUENZA
     Dosage: 20 MG/KG/ TWICE PER DAY / INTRAVENOUS
     Route: 042
     Dates: start: 20091203
  2. OSELTAMIVIR PHOSPHATE [Suspect]
     Indication: H1N1 INFLUENZA
     Dosage: 45 MG/ TWICE PER DAY/ INTRAVENOUS
     Route: 042
  3. NEURAMINIDASE INHIBITOR (NEURAMINIDASE INHIBITOR) (FORMULATION UNKNOWN [Suspect]
  4. RIBAVIRIN [Concomitant]

REACTIONS (9)
  - ACUTE RESPIRATORY DISTRESS SYNDROME [None]
  - CYTOMEGALOVIRUS TEST POSITIVE [None]
  - DRUG LEVEL DECREASED [None]
  - DRUG RESISTANCE [None]
  - HUMAN RHINOVIRUS TEST POSITIVE [None]
  - IMMUNE SYSTEM DISORDER [None]
  - INFLUENZA [None]
  - LOWER RESPIRATORY TRACT INFECTION [None]
  - VIRAL MUTATION IDENTIFIED [None]
